FAERS Safety Report 9563724 (Version 1)
Quarter: 2013Q3

REPORT INFORMATION
  Report Type: Spontaneous
  Country: US (occurrence: None)
  Receive Date: 20130926
  Receipt Date: 20130926
  Transmission Date: 20140515
  Serious: Yes (Life-Threatening)
  Sender: FDA-Public Use
  Company Number: None

PATIENT
  Age: 69 Year
  Sex: Female
  Weight: 77.11 kg

DRUGS (13)
  1. ACETAMINOPHEN- COD#3 TABLET [Suspect]
     Indication: MIGRAINE
     Dosage: #3 1-2 TAB WITH BREAK THROUGH PAIN BY MOUTH
     Dates: start: 20130820, end: 20130820
  2. PACEMAKER [Concomitant]
  3. NEUROTIN [Concomitant]
  4. FIOROCIST [Concomitant]
  5. CLONAZEPAM [Concomitant]
  6. LEVOTHYOXINE [Concomitant]
  7. VALTREX [Concomitant]
  8. MYBETRIQ [Concomitant]
  9. NORTRYPTILIONE [Concomitant]
  10. MAGNESUION [Concomitant]
  11. POTASSIUM [Concomitant]
  12. B VITS [Concomitant]
  13. DIGESTIVE ENZGMES [Concomitant]

REACTIONS (1)
  - Anaphylactic reaction [None]
